FAERS Safety Report 11476331 (Version 1)
Quarter: 2015Q3

REPORT INFORMATION
  Report Type: Spontaneous
  Country: US (occurrence: US)
  Receive Date: 20150909
  Receipt Date: 20150909
  Transmission Date: 20151125
  Serious: No
  Sender: FDA-Public Use
  Company Number: US-JAZZ-2014-US-009795

PATIENT
  Sex: Male

DRUGS (4)
  1. XYREM [Suspect]
     Active Substance: SODIUM OXYBATE
     Indication: NARCOLEPSY
     Dosage: 2.5 G, BID
     Route: 048
     Dates: start: 201211, end: 201305
  2. XYREM [Suspect]
     Active Substance: SODIUM OXYBATE
     Dosage: 2.25 G, SECOND DOSE
     Route: 048
     Dates: start: 201305, end: 201307
  3. XYREM [Suspect]
     Active Substance: SODIUM OXYBATE
     Dosage: 3.5 G, BID
     Route: 048
     Dates: start: 201307
  4. XYREM [Suspect]
     Active Substance: SODIUM OXYBATE
     Dosage: 2.75 G, FIRST DOSE
     Route: 048
     Dates: start: 201305, end: 201307

REACTIONS (2)
  - Feeling abnormal [Recovered/Resolved]
  - Depression [Recovered/Resolved]
